FAERS Safety Report 14747446 (Version 2)
Quarter: 2018Q2

REPORT INFORMATION
  Report Type: Spontaneous
  Country: US (occurrence: US)
  Receive Date: 20180411
  Receipt Date: 20180423
  Transmission Date: 20180711
  Serious: Yes (Hospitalization)
  Sender: FDA-Public Use
  Company Number: US-ASTRAZENECA-2018SE43307

PATIENT
  Sex: Female
  Weight: 71.7 kg

DRUGS (1)
  1. PULMICORT FLEXHALER [Suspect]
     Active Substance: BUDESONIDE
     Indication: ASTHMA
     Dosage: 180UG/INHAL THREE TIMES A DAY
     Route: 055

REACTIONS (4)
  - Patella fracture [Unknown]
  - Intentional product misuse [Unknown]
  - Off label use [Unknown]
  - Fall [Recovered/Resolved]
